FAERS Safety Report 9799003 (Version 2)
Quarter: 2014Q1

REPORT INFORMATION
  Report Type: Spontaneous
  Country: DE (occurrence: None)
  Receive Date: 20131231
  Receipt Date: 20140106
  Transmission Date: 20141002
  Serious: Yes (Hospitalization, Congenital Anomaly, Other)
  Sender: FDA-Public Use
  Company Number: AUR-APL-2013-10831

PATIENT
  Age: 0 Day
  Sex: Male
  Weight: 2.98 kg

DRUGS (4)
  1. OLANZAPINE [Suspect]
     Indication: SCHIZOPHRENIA
     Dosage: 20 MG, 1 D
     Route: 064
  2. LORAZEPAM (LORAZEPAM) [Suspect]
     Dosage: 4 MG, 1 D
     Route: 064
  3. DOPEGYT (METHYLDOPA) [Concomitant]
  4. AMOXICILLIN (AMOXICILLIN) [Concomitant]

REACTIONS (8)
  - Hypotonia neonatal [None]
  - Retrognathia [None]
  - Feeding disorder neonatal [None]
  - Blood creatine phosphokinase MB increased [None]
  - Myoglobin blood increased [None]
  - Blood lactate dehydrogenase increased [None]
  - Maternal drugs affecting foetus [None]
  - Caesarean section [None]
